FAERS Safety Report 9929375 (Version 1)
Quarter: 2014Q1

REPORT INFORMATION
  Report Type: Spontaneous
  Country: US (occurrence: US)
  Receive Date: 20140227
  Receipt Date: 20140227
  Transmission Date: 20141002
  Serious: No
  Sender: FDA-Public Use
  Company Number: US-GILEAD-2014-0095239

PATIENT
  Sex: Female

DRUGS (2)
  1. LETAIRIS [Suspect]
     Indication: PRODUCT USED FOR UNKNOWN INDICATION
     Dosage: 5 MG, UNK
     Route: 048
     Dates: start: 20140210
  2. LETAIRIS [Suspect]
     Dosage: 10 MG, QD
     Dates: start: 20140211

REACTIONS (14)
  - Pruritus [Unknown]
  - Pyrexia [Unknown]
  - Decreased appetite [Unknown]
  - Myalgia [Unknown]
  - Musculoskeletal pain [Unknown]
  - Pain in extremity [Unknown]
  - Pain [Unknown]
  - Condition aggravated [Unknown]
  - Swelling face [Unknown]
  - Abdominal pain upper [Unknown]
  - Nasal congestion [Unknown]
  - Dyspnoea [Unknown]
  - Oedema peripheral [Unknown]
  - Nausea [Unknown]
